FAERS Safety Report 14033937 (Version 4)
Quarter: 2017Q4

REPORT INFORMATION
  Report Type: Spontaneous
  Country: BR (occurrence: BR)
  Receive Date: 20171003
  Receipt Date: 20171129
  Transmission Date: 20180321
  Serious: Yes (Other)
  Sender: FDA-Public Use
  Company Number: PHHY2017BR140498

PATIENT
  Sex: Female

DRUGS (2)
  1. EXJADE [Suspect]
     Active Substance: DEFERASIROX
     Indication: IRON OVERLOAD
     Dosage: 500 MG, QD
     Route: 065
  2. EXJADE [Suspect]
     Active Substance: DEFERASIROX
     Dosage: 1000 MG, BID
     Route: 048
     Dates: start: 201708, end: 201708

REACTIONS (9)
  - Chills [Recovered/Resolved]
  - Acute leukaemia [Unknown]
  - Bronchospasm [Recovered/Resolved]
  - Swelling [Unknown]
  - Hypersensitivity [Unknown]
  - Nausea [Recovered/Resolved]
  - Hyperhidrosis [Recovered/Resolved]
  - Pyrexia [Unknown]
  - Blast cell count increased [Unknown]
